FAERS Safety Report 18014042 (Version 1)
Quarter: 2020Q3

REPORT INFORMATION
  Report Type: Spontaneous
  Country: GB (occurrence: GB)
  Receive Date: 20200713
  Receipt Date: 20200713
  Transmission Date: 20201103
  Serious: Yes (Death, Life-Threatening)
  Sender: FDA-Public Use
  Company Number: GB-MYLANLABS-2020M1062142

PATIENT
  Age: 53 Year
  Sex: Female

DRUGS (15)
  1. FUROSEMIDE. [Suspect]
     Active Substance: FUROSEMIDE
     Indication: PRODUCT USED FOR UNKNOWN INDICATION
     Dosage: 40 MG, DAILY
     Route: 042
     Dates: start: 1969
  2. AMPICILLIN SODIUM. [Concomitant]
     Active Substance: AMPICILLIN SODIUM
     Indication: PNEUMONIA KLEBSIELLA
     Dosage: UNK
     Dates: start: 1969
  3. HYDROCORTISONE SODIUM SUCCINATE [Suspect]
     Active Substance: HYDROCORTISONE SODIUM SUCCINATE
     Indication: BRAIN OEDEMA
     Dosage: 100 MG, 4X/DAY
     Route: 042
     Dates: start: 1969
  4. DIGOXIN. [Concomitant]
     Active Substance: DIGOXIN
     Dosage: 0.25 MG, DAILY
  5. PHENYTOIN SODIUM. [Suspect]
     Active Substance: PHENYTOIN SODIUM
     Dosage: 250 MG (FIVE INJECTIONS)
     Route: 042
     Dates: start: 1969
  6. AMPICILLIN SODIUM. [Concomitant]
     Active Substance: AMPICILLIN SODIUM
     Indication: ANTIBIOTIC THERAPY
  7. KANAMYCIN A SULFATE. [Concomitant]
     Active Substance: KANAMYCIN A SULFATE
     Indication: PNEUMONIA
  8. CHLORTHALIDONE. [Suspect]
     Active Substance: CHLORTHALIDONE
     Indication: PRODUCT USED FOR UNKNOWN INDICATION
     Dosage: 100 MG, ALTERNATE DAY
     Route: 048
     Dates: start: 1969
  9. PHENYTOIN SODIUM. [Suspect]
     Active Substance: PHENYTOIN SODIUM
     Indication: VENTRICULAR EXTRASYSTOLES
     Dosage: 25 MG/KG
     Route: 042
     Dates: start: 1969
  10. WARFARIN [Concomitant]
     Active Substance: WARFARIN
     Dosage: UNK
  11. ISOPRENALINE [Concomitant]
     Active Substance: ISOPROTERENOL HYDROCHLORIDE
     Indication: PERIPHERAL CIRCULATORY FAILURE
     Dosage: UNK (INFUSION)
     Dates: start: 1969
  12. PHENOBARBITAL. [Concomitant]
     Active Substance: PHENOBARBITAL
     Indication: STATUS EPILEPTICUS
     Dosage: UNK
     Dates: start: 1969
  13. DEXTRAN [Concomitant]
     Active Substance: DEXTRAN
     Indication: PERIPHERAL CIRCULATORY FAILURE
     Dosage: UNK
     Dates: start: 1969
  14. SLOW K [Concomitant]
     Active Substance: POTASSIUM CHLORIDE
     Dosage: 1200 MG, 2X/DAY (SLOW)
  15. KANAMYCIN A SULFATE. [Concomitant]
     Active Substance: KANAMYCIN A SULFATE
     Indication: ANTIBIOTIC THERAPY
     Dosage: UNK
     Dates: start: 1969, end: 1969

REACTIONS (1)
  - Hyperglycaemic hyperosmolar nonketotic syndrome [Fatal]
